FAERS Safety Report 8046563-9 (Version None)
Quarter: 2012Q1

REPORT INFORMATION
  Report Type: 
  Country: None (occurrence: None)
  Receive Date: 20120113
  Receipt Date: 20120105
  Transmission Date: 20120608
  Serious: Yes (Other)
  Sender: FDA-Public Use
  Company Number: US-ASTRAZENECA-2011SE61676

PATIENT
  Age: 52 Year
  Sex: Male

DRUGS (3)
  1. RANITIDINE [Concomitant]
  2. PRILOSEC [Suspect]
     Route: 048
  3. NEXIUM [Suspect]
     Route: 048

REACTIONS (10)
  - NAUSEA [None]
  - DRUG INEFFECTIVE [None]
  - DRUG DOSE OMISSION [None]
  - HEPATITIS C [None]
  - HIATUS HERNIA [None]
  - PAIN [None]
  - MUSCLE SPASMS [None]
  - ADVERSE DRUG REACTION [None]
  - VOMITING [None]
  - DIARRHOEA [None]
